FAERS Safety Report 12247878 (Version 1)
Quarter: 2016Q2

REPORT INFORMATION
  Report Type: Spontaneous
  Country: SK (occurrence: SK)
  Receive Date: 20160408
  Receipt Date: 20160408
  Transmission Date: 20160815
  Serious: Yes (Life-Threatening, Hospitalization)
  Sender: FDA-Public Use
  Company Number: SK-TAKEDA-2016TUS006057

PATIENT
  Age: 61 Year
  Sex: Female

DRUGS (2)
  1. QUESTAX [Suspect]
     Active Substance: QUETIAPINE FUMARATE
     Indication: DEPRESSION
     Dosage: 100 MG, QD
     Route: 048
     Dates: start: 20160316, end: 20160322
  2. TRINTELLIX [Suspect]
     Active Substance: VORTIOXETINE HYDROBROMIDE
     Indication: DEPRESSION
     Dosage: 10 MG, QD
     Route: 048
     Dates: start: 20151107, end: 20160322

REACTIONS (5)
  - Dyspepsia [Recovered/Resolved]
  - Hypokalaemia [Recovered/Resolved]
  - Hyponatraemia [Recovered/Resolved]
  - Altered state of consciousness [Recovered/Resolved]
  - Atrial fibrillation [Recovered/Resolved]

NARRATIVE: CASE EVENT DATE: 20160322
